FAERS Safety Report 25419468 (Version 2)
Quarter: 2025Q4

REPORT INFORMATION
  Report Type: Spontaneous
  Country: US (occurrence: US)
  Receive Date: 20250610
  Receipt Date: 20251017
  Transmission Date: 20260118
  Serious: No
  Sender: PHARMING GROUP
  Company Number: US-PHARMING-PHAUS2025000816

PATIENT

DRUGS (2)
  1. RUCONEST [Suspect]
     Active Substance: CONESTAT ALFA
     Indication: Hereditary angioedema
     Dosage: 2925 IU, PRN
     Route: 042
     Dates: start: 202302
  2. RUCONEST [Suspect]
     Active Substance: CONESTAT ALFA
     Dosage: 2925 IU, AS NEEDED
     Route: 042
     Dates: start: 202302

REACTIONS (1)
  - Weight fluctuation [Unknown]
